FAERS Safety Report 24401690 (Version 2)
Quarter: 2024Q4

REPORT INFORMATION
  Report Type: Spontaneous
  Country: CN (occurrence: CN)
  Receive Date: 20241007
  Receipt Date: 20241010
  Transmission Date: 20250114
  Serious: Yes (Hospitalization, Other)
  Sender: ABBVIE
  Company Number: None

PATIENT
  Age: 3 Year
  Sex: Male
  Weight: 14 kg

DRUGS (1)
  1. AVIBACTAM SODIUM\CEFTAZIDIME [Suspect]
     Active Substance: AVIBACTAM SODIUM\CEFTAZIDIME
     Indication: Pneumonia
     Dosage: TIME INTERVAL: 0.33333333 DAYS: 0.83 G, 3X/DAY
     Route: 041
     Dates: start: 20210919, end: 20211002

REACTIONS (4)
  - Petit mal epilepsy [Recovered/Resolved]
  - Abdominal pain [Unknown]
  - Off label use [Unknown]
  - Tachypnoea [Unknown]

NARRATIVE: CASE EVENT DATE: 20210901
